FAERS Safety Report 6434724-1 (Version None)
Quarter: 2009Q4

REPORT INFORMATION
  Report Type: 
  Country: None (occurrence: None)
  Receive Date: 20091110
  Receipt Date: 20090914
  Transmission Date: 20100525
  Serious: No
  Sender: FDA-Public Use
  Company Number: US-BAYER-200926411NA

PATIENT
  Sex: Female

DRUGS (8)
  1. BETASERON [Suspect]
     Indication: SECONDARY PROGRESSIVE MULTIPLE SCLEROSIS
     Dosage: TOTAL DAILY DOSE: 8 MIU
     Route: 058
     Dates: start: 20090701
  2. DITROPAN [Concomitant]
  3. PAXIL [Concomitant]
  4. LAMICTAL [Concomitant]
  5. DARVOCET [Concomitant]
  6. M.V.I. [Concomitant]
  7. VITAMIN B-12 [Concomitant]
  8. CALCIUM SUPPLEMENT [Concomitant]

REACTIONS (2)
  - ABDOMINAL PAIN UPPER [None]
  - DIARRHOEA [None]
